FAERS Safety Report 5688127-8 (Version None)
Quarter: 2008Q1

REPORT INFORMATION
  Report Type: 
  Country: None (occurrence: None)
  Receive Date: 20080327
  Receipt Date: 20080323
  Transmission Date: 20080703
  Serious: Yes (Hospitalization)
  Sender: FDA-Public Use
  Company Number: 2008SP005792

PATIENT
  Age: 53 Year
  Sex: Male

DRUGS (4)
  1. PEG-INTRON [Suspect]
     Indication: HEPATITIS C
     Dates: start: 20071101
  2. REBETOL [Suspect]
     Indication: HEPATITIS C
     Dosage: PO
     Route: 048
     Dates: start: 20071101
  3. LORTAB (CON.) [Concomitant]
  4. PAXIL (CON.) [Concomitant]

REACTIONS (5)
  - ALOPECIA [None]
  - EROSIVE OESOPHAGITIS [None]
  - INFLUENZA LIKE ILLNESS [None]
  - RETCHING [None]
  - WHITE BLOOD CELL COUNT DECREASED [None]
